FAERS Safety Report 8381017-1 (Version None)
Quarter: 2012Q2

REPORT INFORMATION
  Report Type: 
  Country: None (occurrence: None)
  Receive Date: 20120522
  Receipt Date: 20111027
  Transmission Date: 20120825
  Serious: No
  Sender: FDA-Public Use
  Company Number: 2011-10461

PATIENT
  Age: 77 Year
  Sex: Female

DRUGS (2)
  1. LEVAQUIN [Concomitant]
  2. THERACYS [Suspect]
     Indication: PRODUCT USED FOR UNKNOWN INDICATION
     Dosage: I.VES.
     Dates: start: 20110707, end: 20110707

REACTIONS (4)
  - LOCAL SWELLING [None]
  - PAIN [None]
  - OEDEMA PERIPHERAL [None]
  - JOINT SWELLING [None]
